FAERS Safety Report 5797610-6 (Version None)
Quarter: 2008Q2

REPORT INFORMATION
  Report Type: 
  Country: None (occurrence: None)
  Receive Date: 20080618
  Receipt Date: 20070831
  Transmission Date: 20081010
  Serious: Yes (Other)
  Sender: FDA-Public Use
  Company Number: 200714636US

PATIENT
  Age: 50 Year
  Sex: Female
  Weight: 97.7 kg

DRUGS (11)
  1. LANTUS [Suspect]
     Indication: TYPE 1 DIABETES MELLITUS
     Dosage: 30 U
     Dates: start: 20070314, end: 20070101
  2. LANTUS [Suspect]
     Indication: TYPE 1 DIABETES MELLITUS
     Dosage: 36 U QAM
     Dates: start: 20070101
  3. ACETYLSALICYLIC ACID/DIPYRIDAMOLE (AGGRENOX) [Concomitant]
  4. COREG [Concomitant]
  5. ASPIRIN [Concomitant]
  6. ZOCOR [Concomitant]
  7. RANITIDINE HYDROCHLORIDE (ZANTAC) [Concomitant]
  8. ALPRAZOLAM [Concomitant]
  9. FLUOXETINE HCL [Concomitant]
  10. NOVOLOG [Concomitant]
  11. INSULIN HUMAN, INSULIN HUMAN INJECTION, ISOPHANE (HUMULINE /00806401/) [Concomitant]

REACTIONS (2)
  - DRUG INEFFECTIVE [None]
  - HYPERGLYCAEMIA [None]
